FAERS Safety Report 4690884-4 (Version None)
Quarter: 2005Q2

REPORT INFORMATION
  Report Type: 
  Country: None (occurrence: None)
  Receive Date: 20050614
  Receipt Date: 20050527
  Transmission Date: 20051028
  Serious: Yes (Hospitalization)
  Sender: FDA-Public Use
  Company Number: CAO05000699

PATIENT
  Age: 77 Year
  Sex: Male

DRUGS (14)
  1. METAMUCIL-2 [Suspect]
     Dosage: 1 TSP 3/DAY FOR 4 DAYS ORAL
     Route: 048
     Dates: start: 20050422, end: 20050513
  2. PLAVIX [Concomitant]
  3. ASPIRIN [Concomitant]
  4. NORVASC [Concomitant]
  5. COZAAR [Concomitant]
  6. LASIX (FUROSEMIDE SODIUM, FUROSEMIDE) [Concomitant]
  7. LEVOTHYROXINE SODIUM [Concomitant]
  8. ZANTAC [Concomitant]
  9. LOPRESSOR [Concomitant]
  10. LIPITOR [Concomitant]
  11. ^COLIC^ [Concomitant]
  12. HYTRIN [Concomitant]
  13. RAVOTRIL (CLONAZEPAM) [Concomitant]
  14. TIAPROFENIC ACID(TIAPROFENIC ACID) [Concomitant]

REACTIONS (4)
  - DIARRHOEA [None]
  - FEELING ABNORMAL [None]
  - PHARMACEUTICAL PRODUCT COMPLAINT [None]
  - VOMITING [None]
